FAERS Safety Report 24633331 (Version 1)
Quarter: 2024Q4

REPORT INFORMATION
  Report Type: Spontaneous
  Country: US (occurrence: US)
  Receive Date: 20241118
  Receipt Date: 20241118
  Transmission Date: 20250115
  Serious: No
  Sender: SANOFI AVENTIS
  Company Number: US-SA-2024SA331138

PATIENT
  Age: 70 Year
  Sex: Male
  Weight: 92.99 kg

DRUGS (1)
  1. DUPIXENT [Suspect]
     Active Substance: DUPILUMAB
     Indication: Eczema
     Dosage: 300 MG, QOW
     Route: 058
     Dates: start: 20240830, end: 20241024

REACTIONS (5)
  - Oropharyngeal pain [Not Recovered/Not Resolved]
  - Wheezing [Not Recovered/Not Resolved]
  - Dysphonia [Not Recovered/Not Resolved]
  - Chest discomfort [Not Recovered/Not Resolved]
  - Obstructive airways disorder [Not Recovered/Not Resolved]

NARRATIVE: CASE EVENT DATE: 20240101
